FAERS Safety Report 10334152 (Version 1)
Quarter: 2014Q3

REPORT INFORMATION
  Report Type: Report from Study
  Country: US (occurrence: US)
  Receive Date: 20140723
  Receipt Date: 20140723
  Transmission Date: 20150326
  Serious: Yes (Other)
  Sender: FDA-Public Use
  Company Number: PHHY2011US121008

PATIENT
  Sex: Female

DRUGS (27)
  1. DIAZEPAM. [Suspect]
     Active Substance: DIAZEPAM
     Dosage: UNK
     Route: 058
  2. HYDROCORTISONE ACETATE. [Concomitant]
     Active Substance: HYDROCORTISONE ACETATE
     Dosage: THIN FILM TO AFFECTED AREA, 2 IN 1 D
     Route: 061
  3. FEVERFEW [Concomitant]
     Active Substance: FEVERFEW
     Dosage: UNK
  4. TRIAMCINOLONE ACETONIDE. [Concomitant]
     Active Substance: TRIAMCINOLONE ACETONIDE
     Dosage: THIN FILM TO AFFECTED AREA (0.1%, 2 IN 1 D)
     Route: 061
  5. NASACORT AQ [Concomitant]
     Active Substance: TRIAMCINOLONE ACETONIDE
     Dosage: 2 IN 1 D
     Route: 045
  6. ADVAIR DISKUS [Concomitant]
     Active Substance: FLUTICASONE PROPIONATE\SALMETEROL XINAFOATE
     Dosage: 500/50 INHALE 1 PUFF (2 IN 1 D)
  7. RANITIDINE [Concomitant]
     Active Substance: RANITIDINE\RANITIDINE HYDROCHLORIDE
     Dosage: 150 MG (2 IN 1 D)
     Route: 048
  8. SIMETHICONE [Concomitant]
     Active Substance: DIMETHICONE\SILICON DIOXIDE\SIMETHICONE
     Dosage: UNK
  9. ZYRTEC [Concomitant]
     Active Substance: CETIRIZINE HYDROCHLORIDE
     Dosage: 10 MG (1 BY MOUTH Q AM)
     Route: 048
  10. IPRATROPIUM BROMIDE. [Concomitant]
     Active Substance: IPRATROPIUM BROMIDE
     Dosage: UNK
  11. XOLAIR [Suspect]
     Active Substance: OMALIZUMAB
     Indication: ASTHMA
     Dosage: 300 MG (1 IN 4 WK)
     Route: 058
  12. RISPERDAL [Concomitant]
     Active Substance: RISPERIDONE
     Dosage: 2 IN 1 D
     Route: 048
  13. SINGULAIR [Concomitant]
     Active Substance: MONTELUKAST SODIUM
     Dosage: 10 MG, QD
     Route: 048
  14. CLARITIN [Concomitant]
     Active Substance: LORATADINE
     Dosage: 10 MG, UNK
     Route: 048
  15. OMEPRAZOLE. [Concomitant]
     Active Substance: OMEPRAZOLE
     Dosage: 40 MG (EXTENDED RELEASE BID, 2 IN 1D)
     Route: 048
  16. TOCAINIDE HYDROCHLORIDE [Concomitant]
     Active Substance: TOCAINIDE HYDROCHLORIDE
     Dosage: 1 IN 1D
  17. TOPAMAX [Concomitant]
     Active Substance: TOPIRAMATE
     Dosage: 50 MG, UNK
     Route: 048
  18. QVAR [Concomitant]
     Active Substance: BECLOMETHASONE DIPROPIONATE
     Dosage: 1 PUFF BID
     Route: 048
  19. EPIPEN [Concomitant]
     Active Substance: EPINEPHRINE
     Dosage: UNK (1:1000)
  20. ROSUVASTATIN [Concomitant]
     Active Substance: ROSUVASTATIN
     Dosage: 10 MG, 1 IN 1 D
     Route: 048
  21. LISINOPRIL. [Concomitant]
     Active Substance: LISINOPRIL
     Dosage: 2.5 MG, 1 IN 1 D
     Route: 048
  22. QVAR [Concomitant]
     Active Substance: BECLOMETHASONE DIPROPIONATE
     Dosage: 2 PUFFS FOR 1 MONTH
     Route: 048
  23. XOPENEX [Concomitant]
     Active Substance: LEVALBUTEROL HYDROCHLORIDE
     Dosage: 1.25/3 ML, 1 VIAL EVERY 4 TO 6 HR, PRN
     Route: 045
  24. ACETYLSALICYLIC ACID [Concomitant]
     Active Substance: ASPIRIN
     Dosage: UNK
  25. PROVENTIL HFA [Concomitant]
     Active Substance: ALBUTEROL SULFATE
     Dosage: 90 UG (2 PUFFS BY MOUTH Q4 TO 6 HR)
     Route: 048
  26. BENADRYL [Concomitant]
     Active Substance: DIPHENHYDRAMINE HYDROCHLORIDE
     Dosage: UNK (AS REQUIRED USUALLY DAILY)
  27. ALPRAZOLAM. [Concomitant]
     Active Substance: ALPRAZOLAM
     Dosage: 3 IN 1 D
     Route: 048

REACTIONS (14)
  - Anaphylactic reaction [Unknown]
  - Anxiety [Unknown]
  - Injection site pruritus [Unknown]
  - Injection site erythema [Unknown]
  - Injection site swelling [Unknown]
  - Conjunctivitis allergic [Unknown]
  - Dermatitis atopic [Unknown]
  - Gastrooesophageal reflux disease [Unknown]
  - Transient ischaemic attack [Unknown]
  - Drug hypersensitivity [Unknown]
  - Fatigue [Unknown]
  - Cyanosis [Unknown]
  - Lethargy [Unknown]
  - Asthma [Unknown]
